FAERS Safety Report 9620091 (Version 2)
Quarter: 2013Q4

REPORT INFORMATION
  Report Type: Report from Study
  Country: JP (occurrence: JP)
  Receive Date: 20131014
  Receipt Date: 20131014
  Transmission Date: 20140711
  Serious: Yes (Hospitalization)
  Sender: FDA-Public Use
  Company Number: JP-TAKEDA-TCI2013A01161

PATIENT
  Age: 72 Year
  Sex: Female
  Weight: 47 kg

DRUGS (29)
  1. LANSOPRAZOLE [Suspect]
     Indication: PROPHYLAXIS AGAINST GASTROINTESTINAL ULCER
     Dosage: 20 MG, QD
     Route: 048
     Dates: start: 20130111, end: 20130628
  2. ORENCIA [Suspect]
     Indication: RHEUMATOID ARTHRITIS
     Route: 041
  3. ORENCIA [Suspect]
     Route: 041
  4. CELECOX [Concomitant]
     Indication: RHEUMATOID ARTHRITIS
     Route: 048
  5. CELECOX [Concomitant]
     Route: 048
  6. PREDNISOLONE TABLETS 5MG [Concomitant]
     Indication: RHEUMATOID ARTHRITIS
     Route: 048
  7. NU-LOTAN [Concomitant]
     Indication: HYPERTENSION
     Route: 048
  8. NU-LOTAN [Concomitant]
     Route: 048
  9. METHYCOBAL [Concomitant]
     Indication: NEUROPATHY PERIPHERAL
     Route: 048
  10. METHYCOBAL [Concomitant]
     Indication: NEUROPATHY PERIPHERAL
     Route: 048
  11. LIPITOR [Concomitant]
     Indication: HYPERLIPIDAEMIA
     Route: 048
  12. LIPITOR [Concomitant]
     Indication: HYPERLIPIDAEMIA
     Route: 048
  13. PROGRAF [Concomitant]
     Indication: RHEUMATOID ARTHRITIS
     Route: 048
  14. PROGRAF [Concomitant]
     Route: 048
  15. BONOTEO [Concomitant]
     Indication: OSTEOPOROSIS
     Route: 048
  16. BONOTEO [Concomitant]
     Route: 048
  17. MYSLEE [Concomitant]
     Indication: INSOMNIA
     Route: 048
  18. MYSLEE [Concomitant]
     Route: 048
  19. MOHRUS TAPE [Concomitant]
     Indication: RHEUMATOID ARTHRITIS
     Route: 062
  20. MOHRUS TAPE [Concomitant]
     Indication: SPINAL OSTEOARTHRITIS
     Route: 062
  21. MOHRUS TAPE L [Concomitant]
     Indication: RHEUMATOID ARTHRITIS
     Route: 062
  22. MOHRUS TAPE L [Concomitant]
     Indication: SPINAL OSTEOARTHRITIS
     Route: 062
  23. SUMILU LOTION [Concomitant]
     Indication: RHEUMATOID ARTHRITIS
     Route: 062
  24. SUMILU LOTION [Concomitant]
     Indication: SPINAL OSTEOARTHRITIS
     Route: 062
  25. PATANOL [Concomitant]
     Indication: CONJUNCTIVITIS ALLERGIC
     Route: 047
  26. PATANOL [Concomitant]
     Indication: CONJUNCTIVITIS ALLERGIC
     Route: 047
  27. TEARBALANCE [Concomitant]
     Indication: DRY EYE
     Route: 047
  28. TEARBALANCE [Concomitant]
     Route: 047
  29. PREDNISOLONE [Concomitant]
     Indication: RHEUMATOID ARTHRITIS
     Route: 048

REACTIONS (1)
  - Impaired healing [Recovered/Resolved]
